FAERS Safety Report 4981763-3 (Version None)
Quarter: 2006Q2

REPORT INFORMATION
  Report Type: 
  Country: None (occurrence: None)
  Receive Date: 20060420
  Receipt Date: 20060420
  Transmission Date: 20061013
  Serious: Yes (Other)
  Sender: FDA-Public Use
  Company Number: None

PATIENT
  Age: 51 Year
  Sex: Male
  Weight: 77.1115 kg

DRUGS (1)
  1. AMBIEN [Suspect]
     Indication: SLEEP DISORDER THERAPY
     Dosage: 10MG   1 TAB @ BEDTIME  PO
     Route: 048
     Dates: start: 20051010, end: 20060418

REACTIONS (4)
  - ABNORMAL SLEEP-RELATED EVENT [None]
  - ALCOHOL USE [None]
  - AMNESIA [None]
  - LEGAL PROBLEM [None]
